FAERS Safety Report 17261650 (Version 1)
Quarter: 2020Q1

REPORT INFORMATION
  Report Type: Spontaneous
  Country: FR (occurrence: FR)
  Receive Date: 20200113
  Receipt Date: 20200113
  Transmission Date: 20200409
  Serious: Yes (Death)
  Sender: FDA-Public Use
  Company Number: FR-TEVA-2019-FR-1120595

PATIENT
  Age: 52 Year
  Sex: Male
  Weight: 45 kg

DRUGS (11)
  1. METHOTREXATE. [Interacting]
     Active Substance: METHOTREXATE
     Indication: ANKYLOSING SPONDYLITIS
     Dosage: 15 MILLIGRAM
     Route: 058
     Dates: start: 20190814, end: 201909
  2. OROZAMUDOL [Concomitant]
     Active Substance: TRAMADOL
  3. ACIDE FOLIQUE [Concomitant]
     Active Substance: FOLIC ACID
  4. COSENTYX [Suspect]
     Active Substance: SECUKINUMAB
     Dosage: 2 150MG INJECTIONS IN ONE TAKE/WEEK, 300 MILLIGRAM
     Route: 058
     Dates: start: 20190815
  5. PERINDOPRIL ERBUMINE. [Concomitant]
     Active Substance: PERINDOPRIL ERBUMINE
  6. LANSOPRAZOLE. [Suspect]
     Active Substance: LANSOPRAZOLE
     Indication: PROPHYLAXIS AGAINST GASTROINTESTINAL ULCER
     Dosage: 15 MILLIGRAM
     Route: 048
  7. CHLORHYDRATE DE TRAMADOL [Concomitant]
     Active Substance: TRAMADOL HYDROCHLORIDE
  8. LANTUS [Concomitant]
     Active Substance: INSULIN GLARGINE
  9. BIPROFENID LP [Interacting]
     Active Substance: KETOPROFEN
     Indication: ANKYLOSING SPONDYLITIS
     Dosage: 400 MILLIGRAM, BIPROFENID LP 100 MG, COMPRIME SECABLE A LIBERATION PROLONGEE
  10. NOVORAPID 100 U/ML, SOLUTION INJECTABLE EN FLACON [Concomitant]
     Dosage: 100 U/ML
  11. PARACETAMOL [Concomitant]
     Active Substance: ACETAMINOPHEN

REACTIONS (2)
  - Pancytopenia [Fatal]
  - Drug interaction [Fatal]

NARRATIVE: CASE EVENT DATE: 201908
